FAERS Safety Report 9518372 (Version 1)
Quarter: 2013Q3

REPORT INFORMATION
  Report Type: Spontaneous
  Country: US (occurrence: None)
  Receive Date: 20130910
  Receipt Date: 20130910
  Transmission Date: 20140515
  Serious: No
  Sender: FDA-Public Use
  Company Number: None

PATIENT
  Age: 47 Year
  Sex: Male
  Weight: 72.12 kg

DRUGS (1)
  1. COLCRYS [Suspect]
     Indication: BEHCET^S SYNDROME
     Route: 048
     Dates: start: 20130905, end: 20130906

REACTIONS (4)
  - Headache [None]
  - Abdominal pain upper [None]
  - Pain in extremity [None]
  - Product substitution issue [None]
